FAERS Safety Report 7768514-4 (Version None)
Quarter: 2011Q3

REPORT INFORMATION
  Report Type: 
  Country: None (occurrence: None)
  Receive Date: 20110922
  Receipt Date: 20110413
  Transmission Date: 20111222
  Serious: No
  Sender: FDA-Public Use
  Company Number: US-ASTRAZENECA-2011SE21350

PATIENT
  Age: 52 Year
  Sex: Female
  Weight: 131.5 kg

DRUGS (15)
  1. IRON SUPPLEMENT [Concomitant]
  2. SEROQUEL [Suspect]
     Indication: ANXIETY
     Route: 048
     Dates: start: 20100801
  3. SINGULAIR [Concomitant]
  4. ROPINIROLE [Concomitant]
  5. SEROQUEL [Suspect]
     Indication: INSOMNIA
     Route: 048
     Dates: start: 20100801
  6. SEROQUEL [Suspect]
     Route: 048
     Dates: start: 20100801
  7. OMEPRAZOLE [Concomitant]
     Dates: start: 20100201
  8. SEROQUEL [Suspect]
     Indication: DEPRESSION
     Route: 048
     Dates: start: 20100801
  9. EFFEXOR [Concomitant]
     Dates: start: 20100901
  10. POTASSIUM CHLORIDE [Concomitant]
  11. SEROQUEL [Suspect]
     Route: 048
     Dates: start: 20100801
  12. SEROQUEL [Suspect]
     Route: 048
     Dates: start: 20100801
  13. PROZAC [Concomitant]
  14. LORAZEPAM [Concomitant]
  15. ADVAIR DISKUS 100/50 [Concomitant]

REACTIONS (5)
  - DRUG DOSE OMISSION [None]
  - SLEEP DISORDER [None]
  - INSOMNIA [None]
  - THERAPEUTIC RESPONSE UNEXPECTED [None]
  - OFF LABEL USE [None]
